FAERS Safety Report 19831706 (Version 1)
Quarter: 2021Q3

REPORT INFORMATION
  Report Type: Spontaneous
  Country: US (occurrence: US)
  Receive Date: 20210913
  Receipt Date: 20210913
  Transmission Date: 20211014
  Serious: Yes (Other)
  Sender: FDA-Public Use
  Company Number: None

PATIENT
  Age: 41 Year
  Sex: Female

DRUGS (1)
  1. OPSUMIT [Suspect]
     Active Substance: MACITENTAN
     Indication: PULMONARY HYPERTENSION
     Route: 048
     Dates: start: 20190221

REACTIONS (4)
  - Head injury [None]
  - Refusal of treatment by patient [None]
  - Diarrhoea haemorrhagic [None]
  - Fall [None]

NARRATIVE: CASE EVENT DATE: 20210830
